FAERS Safety Report 8585767-3 (Version None)
Quarter: 2012Q3

REPORT INFORMATION
  Report Type: 
  Country: None (occurrence: None)
  Receive Date: 20120810
  Receipt Date: 20120806
  Transmission Date: 20120928
  Serious: Yes (Death, Other)
  Sender: FDA-Public Use
  Company Number: GB-PFIZER INC-2012190725

PATIENT
  Age: 67 Year
  Sex: Male
  Weight: 39 kg

DRUGS (8)
  1. VORICONAZOLE [Suspect]
     Dosage: 150 MG, EVERY 12H
     Route: 042
  2. PARACETAMOL [Concomitant]
     Dosage: UNK
  3. BUPIVACAINE HCL [Suspect]
     Dosage: 250 MG, DAILY (POSTOPERATIVE DAY 2)
  4. EPINEPHRINE [Concomitant]
     Dosage: 1:200000
  5. BUPIVACAINE HCL [Suspect]
     Indication: NERVE BLOCK
     Dosage: 328 MG, DAILY (DAY OF SURGERY)
     Route: 034
  6. BUPIVACAINE HCL [Suspect]
     Indication: MUSCULOSKELETAL CHEST PAIN
     Dosage: 404 MG, DAILY (POSTOPERATIVE DAY 1)
  7. MORPHINE SULFATE [Concomitant]
     Dosage: UNK
     Route: 042
  8. VORICONAZOLE [Suspect]
     Dosage: 200 MG, UNK
     Route: 042

REACTIONS (8)
  - ACUTE RESPIRATORY DISTRESS SYNDROME [None]
  - DELIRIUM [None]
  - TOXICITY TO VARIOUS AGENTS [None]
  - AGITATION [None]
  - GRAND MAL CONVULSION [None]
  - PNEUMONIA ASPIRATION [None]
  - VOMITING [None]
  - RESPIRATORY FAILURE [None]
